FAERS Safety Report 8806800 (Version 1)
Quarter: 2012Q4

REPORT INFORMATION
  Report Type: 
  Country: US (occurrence: US)
  Receive Date: 20120925
  Receipt Date: 20120925
  Transmission Date: 20130627
  Serious: Yes (Other)
  Sender: FDA-Public Use
  Company Number: US-BAYER-2012-097400

PATIENT
  Sex: Female

DRUGS (1)
  1. MIRENA [Suspect]
     Dosage: 20 ?g/d, UNK
     Route: 015
     Dates: start: 201112

REACTIONS (5)
  - Vaginal haemorrhage [Recovered/Resolved]
  - Road traffic accident [None]
  - Amenorrhoea [None]
  - Vaginal haemorrhage [None]
  - Polymenorrhoea [None]
